FAERS Safety Report 15591864 (Version 1)
Quarter: 2018Q4

REPORT INFORMATION
  Report Type: Spontaneous
  Country: HK (occurrence: HK)
  Receive Date: 20181107
  Receipt Date: 20181107
  Transmission Date: 20190205
  Serious: Yes (Hospitalization)
  Sender: FDA-Public Use
  Company Number: HK-ALLERGAN-1852290US

PATIENT
  Age: 33 Year
  Sex: Female

DRUGS (1)
  1. BOTOX [Suspect]
     Active Substance: ONABOTULINUMTOXINA
     Indication: MUSCLE SPASMS
     Dosage: UNK UNK, SINGLE
     Route: 030
     Dates: start: 20160515, end: 20160515

REACTIONS (7)
  - Muscular weakness [Unknown]
  - Asthenia [Unknown]
  - Botulism [Unknown]
  - Dyspnoea [Unknown]
  - Dysphagia [Unknown]
  - Eyelid ptosis [Unknown]
  - Off label use [Unknown]

NARRATIVE: CASE EVENT DATE: 20160615
